FAERS Safety Report 23625117 (Version 2)
Quarter: 2024Q1

REPORT INFORMATION
  Report Type: Report from Study
  Country: NL (occurrence: NL)
  Receive Date: 20240313
  Receipt Date: 20240319
  Transmission Date: 20240410
  Serious: Yes (Hospitalization)
  Sender: FDA-Public Use
  Company Number: NL-CELLTRION INC.-2024NL005778

PATIENT

DRUGS (2)
  1. BEVACIZUMAB [Suspect]
     Active Substance: BEVACIZUMAB
     Indication: Metastases to lymph nodes
     Dosage: 1375 MG, EVERY 3 WEEKS; ON 19/JAN/2024, RECEIVED THE MOST RECENT DOSE
     Route: 042
     Dates: start: 20240119
  2. ATEZOLIZUMAB [Suspect]
     Active Substance: ATEZOLIZUMAB
     Indication: Metastases to lymph nodes
     Dosage: 1200 MG, EVERY 3 WEEK; ON 19/JAN/2024, RECEIVED THE MOST RECENT DOSE
     Route: 042
     Dates: start: 20240119

REACTIONS (1)
  - Pyrexia [Unknown]

NARRATIVE: CASE EVENT DATE: 20240131
